FAERS Safety Report 5867787-2 (Version None)
Quarter: 2008Q3

REPORT INFORMATION
  Report Type: 
  Country: None (occurrence: None)
  Receive Date: 20080902
  Receipt Date: 20080820
  Transmission Date: 20090109
  Serious: Yes (Life-Threatening, Hospitalization, Disabling, Other)
  Sender: FDA-Public Use
  Company Number: GB-ELI_LILLY_AND_COMPANY-GB200802005151

PATIENT
  Sex: Male
  Weight: 60 kg

DRUGS (6)
  1. CYMBALTA [Suspect]
     Indication: DEPRESSION
     Dosage: 60 MG, DAILY (1/D)
     Route: 048
     Dates: start: 20060701
  2. CYMBALTA [Suspect]
     Dosage: 60 MG, QOD (ALTERNATE DAY)
     Route: 065
     Dates: start: 20061026, end: 20061103
  3. OMEPRAZOLE [Concomitant]
     Dosage: 20 MG, UNKNOWN
     Route: 048
  4. SIMVASTATIN [Concomitant]
     Dosage: 40 MG, UNKNOWN
     Route: 048
  5. FLUDROCORTISONE ACETATE [Concomitant]
     Dosage: 200 UG, UNKNOWN
     Route: 048
  6. FINASTERIDE [Concomitant]
     Dosage: 5 MG, DAILY (1/D)
     Route: 048

REACTIONS (4)
  - FALL [None]
  - FEMUR FRACTURE [None]
  - ORTHOSTATIC HYPOTENSION [None]
  - SUBDURAL HAEMATOMA [None]
